FAERS Safety Report 14525059 (Version 1)
Quarter: 2018Q1

REPORT INFORMATION
  Report Type: Spontaneous
  Country: IT (occurrence: IT)
  Receive Date: 20180213
  Receipt Date: 20180213
  Transmission Date: 20180509
  Serious: Yes (Other)
  Sender: FDA-Public Use
  Company Number: PHHY2017IT200529

PATIENT
  Age: 45 Year
  Sex: Male

DRUGS (1)
  1. IMATINIB MESYLATE. [Suspect]
     Active Substance: IMATINIB MESYLATE
     Indication: CHRONIC MYELOID LEUKAEMIA
     Dosage: UNK
     Route: 065

REACTIONS (11)
  - Pseudoporphyria [Unknown]
  - Blister [Unknown]
  - Blood blister [Unknown]
  - Eosinophilia [Unknown]
  - Skin oedema [Unknown]
  - Photosensitivity reaction [Unknown]
  - Skin erosion [Unknown]
  - Skin degenerative disorder [Unknown]
  - Scab [Unknown]
  - Skin fragility [Unknown]
  - Lymphocytic infiltration [Unknown]
